FAERS Safety Report 12643972 (Version 4)
Quarter: 2017Q1

REPORT INFORMATION
  Report Type: Spontaneous
  Country: IL (occurrence: IL)
  Receive Date: 20160811
  Receipt Date: 20170116
  Transmission Date: 20170428
  Serious: Yes (Hospitalization, Other)
  Sender: FDA-Public Use
  Company Number: IL-VIIV HEALTHCARE LIMITED-IL2016GSK112581

PATIENT
  Age: 51 Year
  Sex: Male

DRUGS (4)
  1. EMTRICITABINE + TENOFOVIR [Suspect]
     Active Substance: EMTRICITABINE\TENOFOVIR
     Indication: HIV INFECTION
  2. TIVICAY [Suspect]
     Active Substance: DOLUTEGRAVIR SODIUM
     Indication: HIV INFECTION
  3. ABACAVIR + LAMIVUDIN [Concomitant]
     Active Substance: ABACAVIR\LAMIVUDINE
     Indication: HIV INFECTION
  4. EFAVIRENZ [Suspect]
     Active Substance: EFAVIRENZ
     Indication: HIV INFECTION

REACTIONS (11)
  - Oedema peripheral [Unknown]
  - Dyspnoea [Unknown]
  - Blood lactate dehydrogenase increased [Unknown]
  - Coronary artery stenosis [Unknown]
  - Aspartate aminotransferase increased [Unknown]
  - Troponin T increased [Unknown]
  - Myocarditis [Unknown]
  - Cardiac failure [Unknown]
  - Ischaemic stroke [Unknown]
  - Ventricular dysfunction [Unknown]
  - Sleep disorder [Unknown]
